FAERS Safety Report 5932145-9 (Version None)
Quarter: 2009Q1

REPORT INFORMATION
  Report Type: 
  Country: None (occurrence: None)
  Receive Date: 20081027
  Receipt Date: 20081027
  Transmission Date: 20090719
  Serious: Yes (Life-Threatening)
  Sender: FDA-Public Use
  Company Number: None

PATIENT
  Sex: Female
  Weight: 56.6996 kg

DRUGS (6)
  1. ZOCOR [Suspect]
     Indication: BLOOD CHOLESTEROL INCREASED
     Dosage: 1 TABLET ONE DAILY BUCCAL
     Route: 002
     Dates: start: 20080701, end: 20080910
  2. SOLODYN [Suspect]
     Indication: HYPERSENSITIVITY
     Dosage: 1 TABLET DAILY BUCCAL
     Route: 002
     Dates: start: 20081008, end: 20081024
  3. CLOBETASOL PROPIONATE [Concomitant]
  4. METRONIDAZOLE [Concomitant]
  5. DESODINE [Concomitant]
  6. PROTOPIC [Concomitant]

REACTIONS (14)
  - ABDOMINAL PAIN UPPER [None]
  - ANGINA PECTORIS [None]
  - ANXIETY [None]
  - CHEST PAIN [None]
  - CONSTIPATION [None]
  - DRUG INEFFECTIVE [None]
  - DYSPNOEA [None]
  - ECONOMIC PROBLEM [None]
  - EMOTIONAL DISORDER [None]
  - HEPATIC PAIN [None]
  - HYPERSENSITIVITY [None]
  - IMPAIRED WORK ABILITY [None]
  - MYALGIA [None]
  - ROSACEA [None]
